FAERS Safety Report 4408663-1 (Version None)
Quarter: 2004Q3

REPORT INFORMATION
  Report Type: 
  Country: None (occurrence: None)
  Receive Date: 20040723
  Receipt Date: 20040712
  Transmission Date: 20050211
  Serious: Yes (Hospitalization, Other)
  Sender: FDA-Public Use
  Company Number: 2004046748

PATIENT
  Age: 78 Year
  Sex: Male

DRUGS (12)
  1. ATORVASTATIN CALCIUM [Suspect]
     Indication: ILL-DEFINED DISORDER
     Dosage: 1 IN 1 D, ORAL
     Route: 048
  2. PRISTINAMYCIN (PRISTANINAMYCIN) [Suspect]
     Indication: ILL-DEFINED DISORDER
     Dosage: 4 IN 1 D, ORAL
     Route: 048
     Dates: end: 20040310
  3. CLAVULIN (AMOXICILLIN TRIHYDRATE, CLAVULANATE POTASSIUM) [Suspect]
     Indication: GANGRENE
     Dosage: 3 GRAM (1 IN 1 D), ORAL
     Route: 048
     Dates: end: 20040228
  4. ACETAMINOPHEN [Concomitant]
  5. FUROSEMIDE 9FUROSEMIDE0 [Concomitant]
  6. ACETYLSALICYLIC ACID SRT [Concomitant]
  7. BISOPROL FUMARATE (BISOPROLOL FUMARATE) [Concomitant]
  8. DIAZEPAM [Concomitant]
  9. NICORDANDIL (NICORANDIL) [Concomitant]
  10. BROMAZEPAM ( BROMAZEPAM) [Concomitant]
  11. ESOMEPRAZOLE (ESOMEPRAZOLE) [Concomitant]
  12. PREDNISONE [Concomitant]

REACTIONS (2)
  - CHOLESTASIS [None]
  - CYTOLYTIC HEPATITIS [None]
